FAERS Safety Report 25736980 (Version 3)
Quarter: 2025Q3

REPORT INFORMATION
  Report Type: Report from Study
  Country: US (occurrence: US)
  Receive Date: 20250828
  Receipt Date: 20250903
  Transmission Date: 20251020
  Serious: Yes (Hospitalization)
  Sender: ABBVIE
  Company Number: US-ABBVIE-6247403

PATIENT
  Age: 61 Year
  Sex: Male
  Weight: 75.296 kg

DRUGS (6)
  1. VENCLEXTA [Suspect]
     Active Substance: VENETOCLAX
     Indication: Mantle cell lymphoma
     Dosage: DOSE INCREASED
     Route: 048
     Dates: start: 2025
  2. VENCLEXTA [Suspect]
     Active Substance: VENETOCLAX
     Indication: Mantle cell lymphoma
     Route: 048
     Dates: start: 20250327
  3. VENCLEXTA [Suspect]
     Active Substance: VENETOCLAX
     Indication: Mantle cell lymphoma
     Route: 048
     Dates: start: 2025
  4. BRUKINSA [Concomitant]
     Active Substance: ZANUBRUTINIB
     Indication: Mantle cell lymphoma
     Dates: start: 20250117
  5. GAZYVA [Concomitant]
     Active Substance: OBINUTUZUMAB
     Indication: Mantle cell lymphoma
     Dates: start: 20250129
  6. PANTOPRAZOLE [Concomitant]
     Active Substance: PANTOPRAZOLE
     Indication: Ulcer

REACTIONS (11)
  - Memory impairment [Recovered/Resolved]
  - Rash macular [Unknown]
  - Platelet count decreased [Unknown]
  - Lip blister [Recovered/Resolved]
  - Poor quality sleep [Unknown]
  - Fatigue [Recovered/Resolved]
  - Aggression [Unknown]
  - Anger [Unknown]
  - Irritability [Unknown]
  - Impatience [Unknown]
  - Haemorrhage [Unknown]

NARRATIVE: CASE EVENT DATE: 20250101
